FAERS Safety Report 19849872 (Version 4)
Quarter: 2022Q3

REPORT INFORMATION
  Report Type: Report from Study
  Country: SG (occurrence: SG)
  Receive Date: 20210917
  Receipt Date: 20220706
  Transmission Date: 20221026
  Serious: Yes (Hospitalization, Other)
  Sender: FDA-Public Use
  Company Number: SG-BRISTOL-MYERS SQUIBB COMPANY-BMS-2021-083848

PATIENT
  Age: 32 Year
  Sex: Female
  Weight: 68 kg

DRUGS (8)
  1. PACLITAXEL [Suspect]
     Active Substance: PACLITAXEL
     Indication: Breast cancer
     Dosage: MOST RECENT DOSE WAS ON 13-AUG-2021
     Route: 042
     Dates: start: 20210806
  2. HYDROCORTISONE [Concomitant]
     Active Substance: HYDROCORTISONE
     Indication: Prophylaxis
     Dosage: 1 DF=1 UNIT NOS
     Route: 061
     Dates: start: 20210805
  3. ORACARE [BENZOCAINE] [Concomitant]
     Indication: Prophylaxis
     Dosage: 1 DF=10 UNITS NOS
     Route: 048
     Dates: start: 20210805
  4. ANAREX [ORPHENADRINE CITRATE;PARACETAMOL] [Concomitant]
     Indication: Prophylaxis
     Dosage: 1 DF= 2 UNITS NOS
     Route: 048
     Dates: start: 20210805
  5. LACTULOSE [Concomitant]
     Active Substance: LACTULOSE
     Indication: Prophylaxis
     Dosage: 1DF=10 UNIT NOS
     Route: 048
     Dates: start: 20210805
  6. LOPERAMIDE [Concomitant]
     Active Substance: LOPERAMIDE
     Indication: Prophylaxis
     Route: 048
     Dates: start: 20210805
  7. ONDANSETRON [Concomitant]
     Active Substance: ONDANSETRON
     Indication: Product used for unknown indication
     Route: 048
     Dates: start: 20210805
  8. METOCLOPRAMIDE [Concomitant]
     Active Substance: METOCLOPRAMIDE
     Indication: Product used for unknown indication
     Route: 048
     Dates: start: 20210805

REACTIONS (1)
  - Urticaria [Recovered/Resolved]

NARRATIVE: CASE EVENT DATE: 20210817
